FAERS Safety Report 10592500 (Version 3)
Quarter: 2017Q1

REPORT INFORMATION
  Report Type: Report from Study
  Country: AR (occurrence: AR)
  Receive Date: 20141119
  Receipt Date: 20170206
  Transmission Date: 20170428
  Serious: Yes (Other)
  Sender: FDA-Public Use
  Company Number: PHHY2014AR143681

PATIENT
  Age: 15 Year
  Sex: Male

DRUGS (2)
  1. LEVOTHYROXIN [Concomitant]
     Active Substance: LEVOTHYROXINE
     Indication: PRODUCT USED FOR UNKNOWN INDICATION
     Dosage: 1 DF, QD
     Route: 048
  2. EXJADE [Suspect]
     Active Substance: DEFERASIROX
     Indication: THALASSAEMIA BETA
     Dosage: 1375 MG, QD
     Route: 065
     Dates: start: 2006

REACTIONS (3)
  - Serum ferritin increased [Not Recovered/Not Resolved]
  - Fracture [Recovered/Resolved]
  - Hepatic siderosis [Recovering/Resolving]

NARRATIVE: CASE EVENT DATE: 2012
